FAERS Safety Report 21147956 (Version 5)
Quarter: 2022Q4

REPORT INFORMATION
  Report Type: Report from Study
  Country: US (occurrence: US)
  Receive Date: 20220729
  Receipt Date: 20221102
  Transmission Date: 20230113
  Serious: No
  Sender: FDA-Public Use
  Company Number: US-NOVARTISTESTPH-NVSC2022US148896

PATIENT
  Sex: Female

DRUGS (4)
  1. KISQALI [Suspect]
     Active Substance: RIBOCICLIB
     Indication: Breast cancer
     Dosage: UNK
     Route: 065
  2. KISQALI [Suspect]
     Active Substance: RIBOCICLIB
     Dosage: 600 MG, QD
     Route: 048
  3. KISQALI [Suspect]
     Active Substance: RIBOCICLIB
     Dosage: 400 MG
     Route: 048
  4. KISQALI [Suspect]
     Active Substance: RIBOCICLIB
     Route: 048

REACTIONS (9)
  - Joint stiffness [Unknown]
  - Joint swelling [Unknown]
  - Electrocardiogram abnormal [Unknown]
  - Pallor [Unknown]
  - Malaise [Unknown]
  - Drug tolerance [Unknown]
  - White blood cell count decreased [Unknown]
  - Nausea [Unknown]
  - Red blood cell count decreased [Unknown]
